FAERS Safety Report 14707657 (Version 2)
Quarter: 2018Q2

REPORT INFORMATION
  Report Type: Report from Study
  Country: US (occurrence: US)
  Receive Date: 20180403
  Receipt Date: 20180410
  Transmission Date: 20180711
  Serious: Yes (Hospitalization)
  Sender: FDA-Public Use
  Company Number: US-GILEAD-2018-0329857

PATIENT
  Age: 52 Year
  Sex: Female

DRUGS (8)
  1. REMODULIN [Concomitant]
     Active Substance: TREPROSTINIL
  2. POTASSIUM [Concomitant]
     Active Substance: POTASSIUM
  3. IRON [Concomitant]
     Active Substance: IRON
  4. AMBRISENTAN [Suspect]
     Active Substance: AMBRISENTAN
     Indication: DISEASE PROGRESSION
  5. AMBRISENTAN [Suspect]
     Active Substance: AMBRISENTAN
     Indication: PULMONARY HYPERTENSION
     Dosage: 10 MG, QD
     Route: 065
     Dates: start: 20150428
  6. AMBRISENTAN [Suspect]
     Active Substance: AMBRISENTAN
     Indication: SCLERODERMA
  7. ADCIRCA [Concomitant]
     Active Substance: TADALAFIL
  8. LASIX [Concomitant]
     Active Substance: FUROSEMIDE

REACTIONS (2)
  - Influenza [Recovered/Resolved]
  - Lung disorder [Recovered/Resolved]

NARRATIVE: CASE EVENT DATE: 201801
